FAERS Safety Report 18522226 (Version 7)
Quarter: 2021Q3

REPORT INFORMATION
  Report Type: Report from Study
  Country: US (occurrence: US)
  Receive Date: 20201119
  Receipt Date: 20210728
  Transmission Date: 20211014
  Serious: No
  Sender: FDA-Public Use
  Company Number: NVSC2020US301094

PATIENT
  Sex: Male

DRUGS (5)
  1. ENTRESTO [Suspect]
     Active Substance: SACUBITRIL\VALSARTAN
     Route: 048
  2. ENTRESTO [Suspect]
     Active Substance: SACUBITRIL\VALSARTAN
     Indication: CARDIAC FAILURE
     Route: 048
  3. ENTRESTO [Suspect]
     Active Substance: SACUBITRIL\VALSARTAN
     Route: 048
  4. ENTRESTO [Suspect]
     Active Substance: SACUBITRIL\VALSARTAN
     Indication: CARDIAC FAILURE
     Dosage: 1 DF (49/51 MG), BID
     Route: 048
  5. ENTRESTO [Suspect]
     Active Substance: SACUBITRIL\VALSARTAN
     Route: 048

REACTIONS (15)
  - Pyrexia [Unknown]
  - Chest pain [Unknown]
  - Weight decreased [Unknown]
  - Dizziness [Unknown]
  - Memory impairment [Unknown]
  - Sinusitis [Unknown]
  - Weight increased [Unknown]
  - Blood triglycerides increased [Unknown]
  - Malaise [Unknown]
  - Rash macular [Unknown]
  - Cognitive disorder [Recovering/Resolving]
  - Aspiration joint [Recovering/Resolving]
  - Lethargy [Unknown]
  - Limb injury [Unknown]
  - Cough [Unknown]
